FAERS Safety Report 6697698-4 (Version None)
Quarter: 2010Q2

REPORT INFORMATION
  Report Type: 
  Country: None (occurrence: None)
  Receive Date: 20100423
  Receipt Date: 20100408
  Transmission Date: 20101027
  Serious: Yes (Life-Threatening)
  Sender: FDA-Public Use
  Company Number: 009978

PATIENT
  Sex: Male
  Weight: 66.2 kg

DRUGS (5)
  1. CIMZIA [Suspect]
     Indication: CROHN'S DISEASE
     Dosage: 400 MG SUBCUTANEOUS
     Route: 058
     Dates: start: 20100407, end: 20100407
  2. ENTOCORT EC [Concomitant]
  3. XIFAXAN [Concomitant]
  4. LOMOTIL [Concomitant]
  5. PREDNISONE [Concomitant]

REACTIONS (3)
  - ANAPHYLACTIC REACTION [None]
  - HYPOTENSION [None]
  - SYNCOPE [None]
